FAERS Safety Report 9615282 (Version 2)
Quarter: 2013Q4

REPORT INFORMATION
  Report Type: Spontaneous
  Country: US (occurrence: US)
  Receive Date: 20131011
  Receipt Date: 20131011
  Transmission Date: 20140711
  Serious: No
  Sender: FDA-Public Use
  Company Number: US-PURDUE-USA-2012-0097085

PATIENT
  Age: 43 Year
  Sex: Female
  Weight: 74.83 kg

DRUGS (3)
  1. BUTRANS [Suspect]
     Indication: PAIN
     Dosage: 5 MCG/HR, UNK
     Route: 062
  2. BUTRANS [Suspect]
     Dosage: 10 MCG, UNK
     Route: 062
     Dates: start: 20121210, end: 20121212
  3. OXYCODONE HYDROCHLORIDE (SIMILAR TO NDA 22-272) [Concomitant]
     Indication: PAIN
     Dosage: 15 MG, UNK
     Route: 048
     Dates: start: 20110808

REACTIONS (4)
  - Headache [Unknown]
  - Nausea [Unknown]
  - Migraine [Recovered/Resolved]
  - Hyperhidrosis [Unknown]
